FAERS Safety Report 9324422 (Version 1)
Quarter: 2013Q2

REPORT INFORMATION
  Report Type: Spontaneous
  Country: US (occurrence: US)
  Receive Date: 20130603
  Receipt Date: 20130603
  Transmission Date: 20140414
  Serious: No
  Sender: FDA-Public Use
  Company Number: US-009507513-1305USA017307

PATIENT
  Sex: Female

DRUGS (2)
  1. AFRIN NO DRIP EXTRA MOISTURIZING NASAL SPRAY [Suspect]
     Indication: NASAL DECONGESTION THERAPY
     Dosage: 2 DF, UNKNOWN
     Route: 048
  2. AFRIN NO DRIP EXTRA MOISTURIZING NASAL SPRAY [Suspect]
     Indication: MEDICAL OBSERVATION

REACTIONS (1)
  - Rhinorrhoea [Unknown]
